FAERS Safety Report 8922718 (Version 3)
Quarter: 2013Q1

REPORT INFORMATION
  Report Type: Spontaneous
  Country: US (occurrence: US)
  Receive Date: 20121125
  Receipt Date: 20130322
  Transmission Date: 20140127
  Serious: No
  Sender: FDA-Public Use
  Company Number: US-ROXANE LABORATORIES, INC.-2012-RO-02394RO

PATIENT
  Sex: Male
  Weight: 94 kg

DRUGS (3)
  1. PREDNISONE [Suspect]
     Indication: ASTHMA
  2. BENADRYL [Concomitant]
     Indication: ASTHMA
  3. SUDAFED [Concomitant]
     Indication: ASTHMA

REACTIONS (2)
  - Diabetes mellitus [Not Recovered/Not Resolved]
  - Cataract [Unknown]
